FAERS Safety Report 7018819-X (Version None)
Quarter: 2010Q3

REPORT INFORMATION
  Report Type: 
  Country: None (occurrence: None)
  Receive Date: 20100928
  Receipt Date: 20100917
  Transmission Date: 20110219
  Serious: Yes (Other)
  Sender: FDA-Public Use
  Company Number: JP-PFIZER INC-2010118944

PATIENT

DRUGS (2)
  1. GABAPEN [Suspect]
     Dosage: UNK
     Route: 048
  2. GABAPEN [Suspect]
     Dosage: 1200 MG, 1X/DAY
     Route: 048

REACTIONS (3)
  - BLOOD CREATINE PHOSPHOKINASE INCREASED [None]
  - MYALGIA [None]
  - OEDEMA [None]
